FAERS Safety Report 8853904 (Version 1)
Quarter: 2012Q4

REPORT INFORMATION
  Report Type: 
  Country: JP (occurrence: JP)
  Receive Date: 20121022
  Receipt Date: 20121022
  Transmission Date: 20130627
  Serious: Yes (Other)
  Sender: FDA-Public Use
  Company Number: PHHY2012JP093468

PATIENT
  Age: 75 Year
  Sex: Female

DRUGS (2)
  1. RIVASTIGMIN [Suspect]
     Indication: DEMENTIA ALZHEIMER^S TYPE
     Dosage: 18 mg, UNK
     Route: 062
     Dates: start: 20120117, end: 2012
  2. RIVASTIGMIN [Suspect]
     Dosage: 9 mg daily
     Route: 062

REACTIONS (1)
  - Blood cholinesterase decreased [Unknown]
